FAERS Safety Report 22344872 (Version 1)
Quarter: 2023Q2

REPORT INFORMATION
  Report Type: Report from Study
  Country: CA (occurrence: CA)
  Receive Date: 20230519
  Receipt Date: 20230519
  Transmission Date: 20230722
  Serious: Yes (Other)
  Sender: FDA-Public Use
  Company Number: CA-BAUSCH-BL-2019-063810

PATIENT
  Age: 61 Year
  Sex: Female
  Weight: 78.912 kg

DRUGS (13)
  1. CONTRAVE [Suspect]
     Active Substance: BUPROPION HYDROCHLORIDE\NALTREXONE HYDROCHLORIDE
     Indication: Weight control
     Dosage: 90/8 MG, ONE TABLET IN THE MORNING
     Route: 048
     Dates: start: 20190809, end: 20190815
  2. CONTRAVE [Suspect]
     Active Substance: BUPROPION HYDROCHLORIDE\NALTREXONE HYDROCHLORIDE
     Dosage: 90/8 MG, ONE TABLET IN THE MORNING, ONE TABLET IN THE EVENING
     Route: 048
     Dates: start: 20190816, end: 20190822
  3. CONTRAVE [Suspect]
     Active Substance: BUPROPION HYDROCHLORIDE\NALTREXONE HYDROCHLORIDE
     Dosage: 90/8 MG, 2 TABLETS IN MORNING AND 1 TABLET IN EVENING
     Route: 048
     Dates: start: 20190823, end: 20190829
  4. CONTRAVE [Suspect]
     Active Substance: BUPROPION HYDROCHLORIDE\NALTREXONE HYDROCHLORIDE
     Dosage: 90/8 MG, STOPPED APPROXIMATELY 13/NOV/2019 ; TWO TABLETS IN THE MORNING, TWO TABLETS IN THE EVENING
     Route: 048
     Dates: start: 20190830, end: 201911
  5. CONTRAVE [Suspect]
     Active Substance: BUPROPION HYDROCHLORIDE\NALTREXONE HYDROCHLORIDE
     Dosage: 90/8 MG, 1 TAB (1 DOSAGE FORMS,1 IN 1 D)
     Route: 048
     Dates: start: 20230318, end: 2023
  6. CONTRAVE [Suspect]
     Active Substance: BUPROPION HYDROCHLORIDE\NALTREXONE HYDROCHLORIDE
     Dosage: 90/8 MG, 1 TAB IN MORNING, 1 TAB IN EVENING
     Route: 048
     Dates: start: 20230323, end: 20230324
  7. CONTRAVE [Suspect]
     Active Substance: BUPROPION HYDROCHLORIDE\NALTREXONE HYDROCHLORIDE
     Dosage: 90/8 MG, 4 TABS/DAY
     Route: 048
     Dates: start: 2023, end: 20230501
  8. OMEGA-3 FATTY ACIDS [Suspect]
     Active Substance: OMEGA-3 FATTY ACIDS
     Indication: Supplementation therapy
     Dosage: 2 CAPSULE EVERY MORNING
     Route: 048
  9. OMEGA-3 FATTY ACIDS [Suspect]
     Active Substance: OMEGA-3 FATTY ACIDS
     Dosage: 1 CAPSULE (1 DOSAGE FORMS,1 IN 24 HR)
     Route: 048
     Dates: start: 202303, end: 2023
  10. LIPITOR [Concomitant]
     Active Substance: ATORVASTATIN CALCIUM
     Indication: Blood cholesterol abnormal
     Dosage: 1 IN 1 D
     Route: 048
  11. ESCITALOPRAM [Concomitant]
     Active Substance: ESCITALOPRAM OXALATE
     Indication: Depression
     Dosage: 20 MG, 1 IN 1 D
     Route: 048
  12. LOXAPINE [Concomitant]
     Active Substance: LOXAPINE
     Indication: Sleep disorder
     Dosage: FREQUENCY: HS (10 MG,1 IN 1 D)
     Route: 048
  13. ATORVASTATIN [Concomitant]
     Active Substance: ATORVASTATIN
     Indication: Blood cholesterol abnormal
     Dosage: 1 IN 1 D
     Route: 048

REACTIONS (7)
  - Haemorrhage urinary tract [Recovering/Resolving]
  - Urinary tract infection [Not Recovered/Not Resolved]
  - Vaccination site haemorrhage [Not Recovered/Not Resolved]
  - Constipation [Recovering/Resolving]
  - Therapy interrupted [Unknown]
  - Therapy cessation [Unknown]
  - Intentional product use issue [Unknown]

NARRATIVE: CASE EVENT DATE: 20191001
